FAERS Safety Report 9416683 (Version 2)
Quarter: 2013Q3

REPORT INFORMATION
  Report Type: Spontaneous
  Country: BR (occurrence: None)
  Receive Date: 20130719
  Receipt Date: 20130725
  Transmission Date: 20140515
  Serious: Yes (Hospitalization, Other)
  Sender: FDA-Public Use
  Company Number: THQ2013A05312

PATIENT
  Age: 90 Year
  Sex: Male

DRUGS (14)
  1. ACTOS [Suspect]
     Indication: DIABETES MELLITUS
     Route: 048
     Dates: start: 2001
  2. PURAN T4 (LEVOTHYROXIN SODIUM) [Concomitant]
  3. DAFLON (DIOGMIN) [Concomitant]
  4. DAONIL (GLIBENCLAMIDE) [Concomitant]
  5. FUROSMIDE [Concomitant]
  6. SPIRONOLACTONE [Concomitant]
  7. ALLOPURINOL [Concomitant]
  8. GLIFAGE XR (METFORMIN) [Concomitant]
  9. PRADAXA (DABIGATRAN ETEXILATR MESILAYE) [Concomitant]
  10. DEPURA (COLECALCIFEROL) [Concomitant]
  11. HYDROCHLOROTHIZIDE, AMLORIDE HDROCHLORIDE) [Concomitant]
  12. AMPLCTIL (CHLORPROMAZIDE HYDROCHLOIRDE) [Concomitant]
  13. OMPERZOLE [Concomitant]
  14. VELIJA (DULOXETINE) [Concomitant]

REACTIONS (10)
  - Ankle fracture [None]
  - Intestinal haemorrhage [None]
  - Muscle atrophy [None]
  - Pain [None]
  - Diabetes mellitus inadequate control [None]
  - Cough [None]
  - Fall [None]
  - Diabetic neuropathy [None]
  - Nasopharyngitis [None]
  - Oxygen supplementation [None]
